FAERS Safety Report 9492491 (Version 1)
Quarter: 2013Q3

REPORT INFORMATION
  Report Type: Report from Study
  Country: US (occurrence: US)
  Receive Date: 20130830
  Receipt Date: 20130830
  Transmission Date: 20140515
  Serious: Yes (Other)
  Sender: FDA-Public Use
  Company Number: US-JNJFOC-20130812683

PATIENT
  Sex: Female
  Weight: 77.11 kg

DRUGS (11)
  1. REMICADE [Suspect]
     Indication: RHEUMATOID ARTHRITIS
     Route: 042
     Dates: start: 2013
  2. REMICADE [Suspect]
     Indication: RHEUMATOID ARTHRITIS
     Route: 042
     Dates: start: 2013, end: 2013
  3. REMICADE [Suspect]
     Indication: ANKYLOSING SPONDYLITIS
     Route: 042
     Dates: start: 2013
  4. REMICADE [Suspect]
     Indication: ANKYLOSING SPONDYLITIS
     Route: 042
     Dates: start: 2013, end: 2013
  5. TOPROL [Concomitant]
     Indication: BLOOD PRESSURE
     Route: 048
  6. HCTZ [Concomitant]
     Indication: BLOOD PRESSURE
     Route: 048
  7. HYDROXYCHLOROQUINE [Concomitant]
     Indication: ARTHRITIS
     Route: 048
  8. FLEXERIL [Concomitant]
     Indication: FIBROMYALGIA
     Route: 048
  9. GABAPENTIN [Concomitant]
     Indication: FIBROMYALGIA
     Route: 048
  10. LORTAB [Concomitant]
     Indication: FIBROMYALGIA
     Route: 048
  11. ASPIRIN [Concomitant]
     Route: 048

REACTIONS (2)
  - Rotator cuff syndrome [Not Recovered/Not Resolved]
  - Therapeutic response decreased [Not Recovered/Not Resolved]
